FAERS Safety Report 24197865 (Version 1)
Quarter: 2024Q3

REPORT INFORMATION
  Report Type: Spontaneous
  Country: RU (occurrence: RU)
  Receive Date: 20240811
  Receipt Date: 20240811
  Transmission Date: 20241017
  Serious: Yes (Other)
  Sender: ORGANON
  Company Number: RU-ORGANON-O2408RUS000730

PATIENT
  Age: 64 Year
  Sex: Female

DRUGS (1)
  1. DIPROSPAN [Suspect]
     Active Substance: BETAMETHASONE DIPROPIONATE\BETAMETHASONE SODIUM PHOSPHATE
     Indication: Arthritis
     Dosage: 7 TIMES OVER TWO MONTHS
     Dates: start: 2022

REACTIONS (2)
  - Diabetes mellitus [Unknown]
  - Inappropriate schedule of product administration [Unknown]
